FAERS Safety Report 17543861 (Version 2)
Quarter: 2020Q2

REPORT INFORMATION
  Report Type: Spontaneous
  Country: CO (occurrence: CO)
  Receive Date: 20200316
  Receipt Date: 20200501
  Transmission Date: 20200713
  Serious: Yes (Death, Hospitalization, Other)
  Sender: FDA-Public Use
  Company Number: CO-AMGEN-COLSP2020040974

PATIENT
  Age: 60 Year
  Sex: Male

DRUGS (1)
  1. ENBREL [Suspect]
     Active Substance: ETANERCEPT
     Indication: RHEUMATOID ARTHRITIS
     Dosage: 50 MG, UNK
     Route: 058

REACTIONS (12)
  - Fluid retention [Unknown]
  - Death [Fatal]
  - Decreased immune responsiveness [Unknown]
  - Cardiac failure [Unknown]
  - Renal failure [Unknown]
  - Anaemia [Unknown]
  - Respiratory failure [Unknown]
  - Cardio-respiratory arrest [Unknown]
  - Epistaxis [Unknown]
  - Mouth haemorrhage [Unknown]
  - Osteoarthritis [Unknown]
  - General physical health deterioration [Unknown]

NARRATIVE: CASE EVENT DATE: 20191025
